FAERS Safety Report 15558146 (Version 1)
Quarter: 2018Q4

REPORT INFORMATION
  Report Type: Spontaneous
  Country: US (occurrence: US)
  Receive Date: 20181027
  Receipt Date: 20181027
  Transmission Date: 20190205
  Serious: No
  Sender: FDA-Public Use
  Company Number: US-ELI_LILLY_AND_COMPANY-US201810011708

PATIENT
  Sex: Male

DRUGS (3)
  1. HUMALOG [Suspect]
     Active Substance: INSULIN LISPRO
     Indication: TYPE 2 DIABETES MELLITUS
     Dosage: UNK UNK, UNKNOWN
     Route: 058
  2. HUMULIN R [Suspect]
     Active Substance: INSULIN HUMAN
     Indication: TYPE 2 DIABETES MELLITUS
     Dosage: UNK UNK, UNKNOWN
     Dates: start: 2011
  3. HUMULIN R [Suspect]
     Active Substance: INSULIN HUMAN
     Dosage: UNK UNK, UNKNOWN
     Dates: start: 2011

REACTIONS (5)
  - Blood glucose decreased [Recovered/Resolved]
  - Blood glucose abnormal [Not Recovered/Not Resolved]
  - Blood glucose increased [Not Recovered/Not Resolved]
  - Insulin resistance [Not Recovered/Not Resolved]
  - Wrong technique in product usage process [Unknown]
